FAERS Safety Report 24378423 (Version 1)
Quarter: 2024Q3

REPORT INFORMATION
  Report Type: Spontaneous
  Country: FR (occurrence: FR)
  Receive Date: 20240930
  Receipt Date: 20240930
  Transmission Date: 20241016
  Serious: Yes (Other)
  Sender: MYLAN
  Company Number: None

PATIENT
  Age: 79 Year
  Sex: Female

DRUGS (3)
  1. ALLOPURINOL [Suspect]
     Active Substance: ALLOPURINOL
     Indication: Gout
     Dosage: 100 MILLIGRAM, QD
     Route: 048
     Dates: start: 20240613, end: 20240722
  2. COLCHICINE [Suspect]
     Active Substance: COLCHICINE
     Indication: Gout
     Dosage: 1 MILLIGRAM, QD
     Route: 048
     Dates: start: 20240606, end: 20240608
  3. COLCHICINE [Suspect]
     Active Substance: COLCHICINE
     Dosage: 0.5 MILLIGRAM, QD
     Route: 048
     Dates: start: 20240609, end: 20240722

REACTIONS (1)
  - Hepatic cytolysis [Recovering/Resolving]

NARRATIVE: CASE EVENT DATE: 20240720
